FAERS Safety Report 20290676 (Version 1)
Quarter: 2022Q1

REPORT INFORMATION
  Report Type: Spontaneous
  Country: US (occurrence: None)
  Receive Date: 20220103
  Receipt Date: 20220103
  Transmission Date: 20220424
  Serious: Yes (Life-Threatening, Disabling, Other)
  Sender: FDA-Public Use
  Company Number: None

PATIENT
  Sex: Male
  Weight: 96.75 kg

DRUGS (1)
  1. ROSUVASTATIN [Suspect]
     Active Substance: ROSUVASTATIN
     Indication: Glycosylated haemoglobin increased
     Dosage: FREQUENCY : DAILY;?
     Route: 048
     Dates: start: 20210215, end: 20210615

REACTIONS (17)
  - Nausea [None]
  - Decreased appetite [None]
  - Incontinence [None]
  - Asthenia [None]
  - Weight decreased [None]
  - Fatigue [None]
  - Hypoaesthesia [None]
  - Hypoaesthesia oral [None]
  - Hypoaesthesia [None]
  - Hypoaesthesia [None]
  - Extrasystoles [None]
  - Feeling abnormal [None]
  - Skin discolouration [None]
  - Impaired quality of life [None]
  - Feeling cold [None]
  - Rash macular [None]
  - Blood creatine phosphokinase increased [None]
